FAERS Safety Report 5392513-3 (Version None)
Quarter: 2007Q3

REPORT INFORMATION
  Report Type: 
  Country: None (occurrence: None)
  Receive Date: 20070720
  Receipt Date: 20070720
  Transmission Date: 20080115
  Serious: Yes (Hospitalization)
  Sender: FDA-Public Use
  Company Number: IT-BRISTOL-MYERS SQUIBB COMPANY-13846258

PATIENT
  Age: 71 Year
  Sex: Female

DRUGS (5)
  1. EFFERALGAN EFFER TABS 500MG [Suspect]
     Route: 048
     Dates: start: 20050620, end: 20050626
  2. AULIN [Suspect]
     Route: 048
     Dates: start: 20050620, end: 20050626
  3. VOLTAREN [Suspect]
     Indication: BACK PAIN
     Route: 030
     Dates: start: 20050620, end: 20050626
  4. MUSCORIL [Concomitant]
     Route: 030
  5. COUMADIN [Concomitant]

REACTIONS (1)
  - HYPERTENSION [None]
